FAERS Safety Report 12724853 (Version 1)
Quarter: 2016Q3

REPORT INFORMATION
  Report Type: Spontaneous
  Country: US (occurrence: US)
  Receive Date: 20160908
  Receipt Date: 20160908
  Transmission Date: 20161109
  Serious: No
  Sender: FDA-Public Use
  Company Number: US-ASTRAZENECA-2016SE91494

PATIENT
  Sex: Female

DRUGS (1)
  1. BYDUREON [Suspect]
     Active Substance: EXENATIDE
     Route: 058
     Dates: start: 20160823

REACTIONS (3)
  - Needle issue [Unknown]
  - Injection site pain [Recovering/Resolving]
  - Injection site irritation [Recovering/Resolving]

NARRATIVE: CASE EVENT DATE: 20160823
